FAERS Safety Report 25674895 (Version 1)
Quarter: 2025Q3

REPORT INFORMATION
  Report Type: Report from Study
  Country: US (occurrence: US)
  Receive Date: 20250813
  Receipt Date: 20250813
  Transmission Date: 20251021
  Serious: No
  Sender: SUNOVION
  Company Number: US-SUMITOMO PHARMA SWITZERLAND GMBH-2025SPA004816

PATIENT
  Age: 82 Year
  Sex: Male

DRUGS (13)
  1. ORGOVYX [Suspect]
     Active Substance: RELUGOLIX
     Indication: Prostate cancer
     Dosage: 360 MG, SINGLE
     Route: 048
     Dates: start: 20250311, end: 20250311
  2. ORGOVYX [Suspect]
     Active Substance: RELUGOLIX
     Dosage: 120 MG, QD
     Route: 048
     Dates: start: 20250312
  3. ROSUVASTATIN [Concomitant]
     Active Substance: ROSUVASTATIN
  4. SILDENAFIL [Concomitant]
     Active Substance: SILDENAFIL
  5. VITAMIN B12 [Concomitant]
     Active Substance: CYANOCOBALAMIN
  6. VITAMIN D3 [Concomitant]
     Active Substance: CHOLECALCIFEROL
  7. ZINC [Concomitant]
     Active Substance: ZINC
  8. ASCORBIC ACID [Concomitant]
     Active Substance: ASCORBIC ACID
  9. ASPIRIN [Concomitant]
     Active Substance: ASPIRIN
  10. FAMOTIDINE [Concomitant]
     Active Substance: FAMOTIDINE
  11. FISH OIL [Concomitant]
     Active Substance: FISH OIL
  12. LISINOPRIL [Concomitant]
     Active Substance: LISINOPRIL
  13. MINERALS\VITAMINS [Concomitant]
     Active Substance: MINERALS\VITAMINS

REACTIONS (2)
  - Hot flush [Unknown]
  - Fatigue [Unknown]
